FAERS Safety Report 8158701-8 (Version None)
Quarter: 2012Q1

REPORT INFORMATION
  Report Type: 
  Country: None (occurrence: None)
  Receive Date: 20120217
  Receipt Date: 20120203
  Transmission Date: 20120608
  Serious: Yes (Death)
  Sender: FDA-Public Use
  Company Number: ALK_02105_2011

PATIENT
  Sex: Female

DRUGS (3)
  1. VIVITROL [Suspect]
     Indication: ALCOHOLISM
     Dosage: (380 MG 1X/MONTH INTRAMUSCULAR)
     Route: 030
     Dates: start: 20111010
  2. LEXAPRO [Concomitant]
  3. ASPIRIN [Concomitant]

REACTIONS (1)
  - DEATH [None]
